FAERS Safety Report 9190403 (Version 3)
Quarter: 2014Q1

REPORT INFORMATION
  Report Type: Report from Study
  Country: US (occurrence: US)
  Receive Date: 20130326
  Receipt Date: 20140227
  Transmission Date: 20141002
  Serious: Yes (Hospitalization)
  Sender: FDA-Public Use
  Company Number: US-SANOFI-AVENTIS-2013SA029264

PATIENT
  Age: 69 Year
  Sex: Female
  Weight: 37 kg

DRUGS (2)
  1. AUBAGIO [Suspect]
     Indication: MULTIPLE SCLEROSIS
     Route: 048
     Dates: start: 20130215, end: 20130311
  2. AUBAGIO [Suspect]
     Indication: MULTIPLE SCLEROSIS
     Dates: start: 20130411

REACTIONS (4)
  - Blood potassium decreased [Recovered/Resolved]
  - Cystitis [Recovered/Resolved]
  - Incontinence [Recovered/Resolved]
  - White blood cell count decreased [Recovered/Resolved]
